FAERS Safety Report 7982196-8 (Version None)
Quarter: 2011Q4

REPORT INFORMATION
  Report Type: 
  Country: None (occurrence: None)
  Receive Date: 20111215
  Receipt Date: 20111208
  Transmission Date: 20120403
  Serious: Yes (Other)
  Sender: FDA-Public Use
  Company Number: JP-B.I. PHARMACEUTICALS,INC./RIDGEFIELD-2011-EU-00864GD

PATIENT
  Sex: Female

DRUGS (4)
  1. DIDANOSINE [Suspect]
     Indication: HIV INFECTION
     Dates: start: 20000101
  2. LAMIVUDINE [Suspect]
     Indication: HIV INFECTION
     Dates: start: 20050101
  3. TENOFOVIR DISOPROXIL FUMARATE [Suspect]
     Indication: HIV INFECTION
     Dates: start: 20050101
  4. NEVIRAPINE [Suspect]
     Indication: HIV INFECTION
     Dates: start: 20000101

REACTIONS (8)
  - MATERNAL EXPOSURE DURING PREGNANCY [None]
  - PORTAL HYPERTENSION [None]
  - ANAEMIA [None]
  - ASCITES [None]
  - VARICES OESOPHAGEAL [None]
  - PREGNANCY [None]
  - MELAENA [None]
  - LARGE INTESTINAL HAEMORRHAGE [None]
